FAERS Safety Report 20080515 (Version 1)
Quarter: 2021Q4

REPORT INFORMATION
  Report Type: Spontaneous
  Country: US (occurrence: None)
  Receive Date: 20211116
  Receipt Date: 20211116
  Transmission Date: 20220303
  Serious: Yes (Hospitalization)
  Sender: FDA-Public Use
  Company Number: None

PATIENT
  Age: 17 Year
  Sex: Female
  Weight: 73 kg

DRUGS (11)
  1. ZENATANE [Suspect]
     Active Substance: ISOTRETINOIN
     Indication: Acne
     Dosage: OTHER QUANTITY : 2 CAPSULE(S);?FREQUENCY : DAILY;?
     Route: 048
     Dates: start: 20210914, end: 20211030
  2. Trokendi XR 150 mg [Concomitant]
  3. TRI-ESTARYLLA [Concomitant]
     Active Substance: ETHINYL ESTRADIOL\NORGESTIMATE
  4. DICYCLOMINE [Concomitant]
     Active Substance: DICYCLOMINE HYDROCHLORIDE
  5. CIPROFLOXACIN [Concomitant]
     Active Substance: CIPROFLOXACIN
  6. KETOROLAC [Concomitant]
  7. ONDANSETRON [Concomitant]
     Active Substance: ONDANSETRON
  8. tylenol dual action [Concomitant]
  9. ADVIL [Concomitant]
     Active Substance: IBUPROFEN
  10. ALEVE [Concomitant]
     Active Substance: NAPROXEN SODIUM
  11. MOTRIN [Concomitant]
     Active Substance: IBUPROFEN

REACTIONS (9)
  - Abdominal pain upper [None]
  - Pyrexia [None]
  - Malaise [None]
  - Nausea [None]
  - Pain [None]
  - Diarrhoea haemorrhagic [None]
  - Large intestine infection [None]
  - Hypophagia [None]
  - Haematochezia [None]

NARRATIVE: CASE EVENT DATE: 20211023
